FAERS Safety Report 8904226 (Version 1)
Quarter: 2012Q4

REPORT INFORMATION
  Report Type: Report from Study
  Country: JP (occurrence: JP)
  Receive Date: 20121112
  Receipt Date: 20121112
  Transmission Date: 20130627
  Serious: Yes (Death, Other)
  Sender: FDA-Public Use
  Company Number: JP-CELGENEUS-087-21660-11100420

PATIENT
  Age: 63 Year
  Sex: Female
  Weight: 54 kg

DRUGS (7)
  1. ABRAXANE [Suspect]
     Indication: BREAST CANCER METASTATIC
     Dosage: 405 Milligram
     Route: 041
     Dates: start: 20110107, end: 20110107
  2. ABRAXANE [Suspect]
     Dosage: 330 Milligram
     Route: 041
     Dates: start: 20110128, end: 20110128
  3. ABRAXANE [Suspect]
     Dosage: 330 Milligram
     Route: 041
     Dates: start: 20110218, end: 20110408
  4. FARESTON [Concomitant]
     Indication: BREAST CANCER METASTATIC
     Dosage: 40 Milligram
     Route: 048
     Dates: start: 20101015, end: 20110505
  5. ALESION [Concomitant]
     Indication: DRUG USE FOR UNKNOWN INDICATION
     Route: 048
     Dates: start: 20110128, end: 20110414
  6. LENDORMIN D [Concomitant]
     Indication: DRUG USE FOR UNKNOWN INDICATION
     Route: 048
     Dates: start: 20110408, end: 20110418
  7. LOCOID [Concomitant]
     Indication: DRUG USE FOR UNKNOWN INDICATION
     Route: 061
     Dates: start: 20110318

REACTIONS (2)
  - White blood cell count decreased [Recovered/Resolved]
  - Neutrophil count decreased [Recovering/Resolving]
